FAERS Safety Report 6765926-2 (Version None)
Quarter: 2010Q2

REPORT INFORMATION
  Report Type: 
  Country: None (occurrence: None)
  Receive Date: 20100611
  Receipt Date: 20100604
  Transmission Date: 20101027
  Serious: Yes (Hospitalization)
  Sender: FDA-Public Use
  Company Number: JP-SANOFI-AVENTIS-2010SA032267

PATIENT
  Age: 70 Year
  Sex: Male
  Weight: 62 kg

DRUGS (11)
  1. PLAVIX [Suspect]
     Route: 048
     Dates: start: 20081002, end: 20081002
  2. PLAVIX [Suspect]
     Route: 048
     Dates: start: 20081003
  3. ASPIRIN [Concomitant]
     Route: 048
     Dates: start: 20081002
  4. CANDESARTAN CILEXETIL [Concomitant]
     Route: 048
     Dates: start: 20081002, end: 20090106
  5. CANDESARTAN CILEXETIL [Concomitant]
     Route: 048
     Dates: start: 20090107
  6. LIPITOR [Concomitant]
     Route: 048
     Dates: start: 20081002, end: 20090106
  7. LIPITOR [Concomitant]
     Route: 048
     Dates: start: 20090107
  8. SIGMART [Concomitant]
     Route: 048
     Dates: start: 20081002
  9. OMEPRAL [Concomitant]
     Indication: PROPHYLAXIS
     Route: 048
     Dates: start: 20081003
  10. ADALAT CC [Concomitant]
     Route: 048
     Dates: start: 20081024
  11. FLUITRAN [Concomitant]
     Route: 048
     Dates: start: 20090107

REACTIONS (1)
  - IN-STENT CORONARY ARTERY RESTENOSIS [None]
